FAERS Safety Report 5721348-4 (Version None)
Quarter: 2008Q2

REPORT INFORMATION
  Report Type: 
  Country: None (occurrence: None)
  Receive Date: 20080428
  Receipt Date: 20080428
  Transmission Date: 20081010
  Serious: Yes (Other)
  Sender: FDA-Public Use
  Company Number: None

PATIENT
  Age: 43 Year
  Sex: Male
  Weight: 88.4514 kg

DRUGS (1)
  1. CHANTIX [Suspect]
     Indication: SMOKING CESSATION THERAPY
     Dates: start: 20070910, end: 20071221

REACTIONS (4)
  - ABNORMAL BEHAVIOUR [None]
  - APATHY [None]
  - EMOTIONAL DISTRESS [None]
  - JOB DISSATISFACTION [None]
